FAERS Safety Report 5162354-0 (Version None)
Quarter: 2006Q4

REPORT INFORMATION
  Report Type: 
  Country: None (occurrence: None)
  Receive Date: 20061130
  Receipt Date: 20061120
  Transmission Date: 20070319
  Serious: Yes (Other)
  Sender: FDA-Public Use
  Company Number: US-GILEAD-2006-0010744

PATIENT
  Sex: Female

DRUGS (3)
  1. EMTRICITABINE [Suspect]
  2. TENOFOVIR DISOPROXIL FUMARATE [Suspect]
  3. SUSTIVA [Suspect]

REACTIONS (1)
  - DRUG TOXICITY [None]
